FAERS Safety Report 8003557-7 (Version None)
Quarter: 2011Q4

REPORT INFORMATION
  Report Type: 
  Country: None (occurrence: None)
  Receive Date: 20111222
  Receipt Date: 20110812
  Transmission Date: 20120403
  Serious: Yes (Other)
  Sender: FDA-Public Use
  Company Number: US-ENDO PHARMACEUTICALS INC.-HCDA20110115

PATIENT
  Sex: Male
  Weight: 94.432 kg

DRUGS (1)
  1. HYDROCODONE/ACETAMINOPHEN 10MG/325MG [Suspect]
     Indication: PAIN
     Dates: start: 20110701, end: 20110101

REACTIONS (4)
  - DRUG INEFFECTIVE [None]
  - PAIN [None]
  - DEPRESSION [None]
  - SUICIDAL IDEATION [None]
